FAERS Safety Report 5494695-1 (Version None)
Quarter: 2007Q4

REPORT INFORMATION
  Report Type: 
  Country: None (occurrence: None)
  Receive Date: 20071015
  Receipt Date: 20070824
  Transmission Date: 20080405
  Serious: No
  Sender: FDA-Public Use
  Company Number: 2007SP003025

PATIENT
  Sex: Female

DRUGS (2)
  1. LUNESTA [Suspect]
     Indication: CATARACT OPERATION
     Dosage: ORAL
     Route: 048
  2. VERSED [Suspect]

REACTIONS (3)
  - AGITATION [None]
  - AMNESIA [None]
  - ANXIETY [None]
